FAERS Safety Report 19170999 (Version 1)
Quarter: 2021Q2

REPORT INFORMATION
  Report Type: Spontaneous
  Country: BR (occurrence: BR)
  Receive Date: 20210422
  Receipt Date: 20210422
  Transmission Date: 20210717
  Serious: Yes (Hospitalization, Other)
  Sender: FDA-Public Use
  Company Number: BR-ASTRAZENECA-2021A324278

PATIENT
  Age: 66 Year
  Sex: Male

DRUGS (9)
  1. IMFINZI [Suspect]
     Active Substance: DURVALUMAB
     Indication: NON-SMALL CELL LUNG CANCER STAGE IIIB
     Route: 042
  2. METOPROLOL SUCCINATE. [Suspect]
     Active Substance: METOPROLOL SUCCINATE
     Route: 048
  3. CIPROFIBRATE [Concomitant]
     Active Substance: CIPROFIBRATE
     Route: 065
  4. PEMETREXED. [Concomitant]
     Active Substance: PEMETREXED
     Route: 065
  5. ASPIRIN. [Concomitant]
     Active Substance: ASPIRIN
     Route: 065
  6. CISPLATIN. [Concomitant]
     Active Substance: CISPLATIN
     Route: 065
  7. METIFORMIN [Concomitant]
     Route: 065
  8. IMFINZI [Suspect]
     Active Substance: DURVALUMAB
     Indication: NON-SMALL CELL LUNG CANCER STAGE IIIB
     Route: 042
  9. EZETIMIBE. [Concomitant]
     Active Substance: EZETIMIBE
     Route: 065

REACTIONS (3)
  - Pulmonary toxicity [Recovered/Resolved]
  - Pneumonitis [Recovered/Resolved]
  - Pulmonary embolism [Recovered/Resolved]
